FAERS Safety Report 22247367 (Version 1)
Quarter: 2023Q2

REPORT INFORMATION
  Report Type: Report from Study
  Country: CO (occurrence: CO)
  Receive Date: 20230425
  Receipt Date: 20230425
  Transmission Date: 20230721
  Serious: Yes (Hospitalization, Other)
  Sender: FDA-Public Use
  Company Number: CO-ABBVIE-4739095

PATIENT
  Age: 48 Year
  Sex: Female
  Weight: 55 kg

DRUGS (3)
  1. HUMIRA [Suspect]
     Active Substance: ADALIMUMAB
     Indication: Rheumatoid arthritis
     Dosage: FORM STRENGTH: 40 MILLIGRAM, LAST ADMINISTRATION: 2023, CITRATE FREE
     Route: 058
     Dates: end: 20230220
  2. HUMIRA [Suspect]
     Active Substance: ADALIMUMAB
     Dosage: FORM STRENGTH: 40 MILLIGRAM, LAST ADMINISTRATION: 2023, CITRATE FREE
     Route: 058
     Dates: start: 20230324
  3. SCOPOLAMINE [Suspect]
     Active Substance: SCOPOLAMINE
     Indication: Product used for unknown indication
     Route: 048
     Dates: start: 202303, end: 202303

REACTIONS (4)
  - Nephrolithiasis [Recovering/Resolving]
  - Hypersensitivity [Recovered/Resolved]
  - Renal colic [Recovering/Resolving]
  - Kidney infection [Recovering/Resolving]

NARRATIVE: CASE EVENT DATE: 20211201
